FAERS Safety Report 7074424-0 (Version None)
Quarter: 2010Q4

REPORT INFORMATION
  Report Type: 
  Country: None (occurrence: None)
  Receive Date: 20101029
  Receipt Date: 20101026
  Transmission Date: 20110411
  Serious: Yes (Hospitalization, Other)
  Sender: FDA-Public Use
  Company Number: US-BRISTOL-MYERS SQUIBB COMPANY-15225295

PATIENT
  Age: 43 Year
  Sex: Female
  Weight: 73 kg

DRUGS (5)
  1. SPRYCEL [Suspect]
     Indication: CHRONIC MYELOID LEUKAEMIA
     Dosage: APPROXIMATELY:04AUG10
     Route: 048
     Dates: start: 20100807, end: 20100815
  2. GLEEVEC [Suspect]
     Indication: CHRONIC MYELOID LEUKAEMIA
     Dosage: INTERRUPTED ON 06AUG10;RESTARTED:16AUG10
     Dates: start: 20100401
  3. WELLBUTRIN [Concomitant]
     Route: 048
  4. TRAZODONE HCL [Concomitant]
  5. PAXIL [Concomitant]
     Route: 048

REACTIONS (12)
  - ANAEMIA [None]
  - ARTHRALGIA [None]
  - ASTHENIA [None]
  - BONE PAIN [None]
  - DECREASED APPETITE [None]
  - DEHYDRATION [None]
  - DEPRESSION [None]
  - DIARRHOEA [None]
  - HAEMATURIA [None]
  - HEADACHE [None]
  - HYPOTENSION [None]
  - MYALGIA [None]
